FAERS Safety Report 24443490 (Version 2)
Quarter: 2024Q4

REPORT INFORMATION
  Report Type: Report from Study
  Country: US (occurrence: US)
  Receive Date: 20241016
  Receipt Date: 20241017
  Transmission Date: 20250115
  Serious: No
  Sender: ROCHE
  Company Number: US-ROCHE-2180983

PATIENT
  Age: 29 Year
  Sex: Female

DRUGS (2)
  1. RITUXAN [Suspect]
     Active Substance: RITUXIMAB
     Indication: Acute haemorrhagic leukoencephalitis
     Dosage: DATE OF TREATMENT: 10/NOV/2023, 27/OCT/2023, 21/APR/2023, 04/NOV/2022, 20/OCT/2022, 20/APR/2022, 20/
     Route: 041
  2. RITUXAN [Suspect]
     Active Substance: RITUXIMAB
     Indication: Neuromyelitis optica spectrum disorder

REACTIONS (2)
  - Off label use [Unknown]
  - No adverse event [Unknown]
